FAERS Safety Report 20003160 (Version 1)
Quarter: 2021Q4

REPORT INFORMATION
  Report Type: Spontaneous
  Country: ES (occurrence: ES)
  Receive Date: 20211027
  Receipt Date: 20211027
  Transmission Date: 20220303
  Serious: Yes (Hospitalization)
  Sender: FDA-Public Use
  Company Number: None

PATIENT
  Age: 74 Year
  Sex: Male

DRUGS (4)
  1. LENVIMA [Suspect]
     Active Substance: LENVATINIB
     Indication: Hepatic cancer
     Route: 048
     Dates: start: 20210419, end: 20210511
  2. CARVEDILOL CINFA [Concomitant]
     Indication: Product used for unknown indication
     Dates: start: 20201126
  3. SIMVASTATINA CINFA [Concomitant]
     Indication: Hypercholesterolaemia
     Dates: start: 20200129
  4. ESOMEPRAZOL CINFA [Concomitant]
     Indication: Product used for unknown indication
     Dates: start: 20170221

REACTIONS (2)
  - Atrial fibrillation [Recovered/Resolved]
  - Embolic stroke [Recovered/Resolved]

NARRATIVE: CASE EVENT DATE: 20210506
